FAERS Safety Report 12535863 (Version 1)
Quarter: 2016Q3

REPORT INFORMATION
  Report Type: Spontaneous
  Country: US (occurrence: None)
  Receive Date: 20160706
  Receipt Date: 20160706
  Transmission Date: 20161109
  Serious: Yes (Other)
  Sender: FDA-Public Use
  Company Number: None

PATIENT
  Age: 86 Year
  Sex: Female
  Weight: 81.65 kg

DRUGS (2)
  1. AMLODIPINE BESYLATE. [Concomitant]
     Active Substance: AMLODIPINE BESYLATE
  2. OXYBUTYNIN ER 5MG TAB AMN (GENERIC FOR DITROPAN XL) [Suspect]
     Active Substance: OXYBUTYNIN
     Indication: POLLAKIURIA
     Dosage: 1 PILL ONCE AT BEDTIME BY MOUTH
     Route: 048
     Dates: start: 20160419, end: 20160619

REACTIONS (5)
  - Pruritus [None]
  - Tongue discomfort [None]
  - Eye pruritus [None]
  - Oral discomfort [None]
  - Diarrhoea [None]

NARRATIVE: CASE EVENT DATE: 20160619
